FAERS Safety Report 8580075-9 (Version None)
Quarter: 2012Q3

REPORT INFORMATION
  Report Type: 
  Country: None (occurrence: None)
  Receive Date: 20120808
  Receipt Date: 20120731
  Transmission Date: 20120928
  Serious: Yes (Death)
  Sender: FDA-Public Use
  Company Number: JP-AMGEN-JPNCT2012049382

PATIENT
  Age: 70 Year
  Sex: Male
  Weight: 50 kg

DRUGS (18)
  1. FLUOROURACIL [Suspect]
     Dosage: UNK
     Route: 040
     Dates: start: 20120531
  2. PROMAC [Concomitant]
     Dosage: UNK
     Route: 048
  3. PANITUMUMAB [Suspect]
     Indication: COLORECTAL CANCER
     Dosage: 6 MG/KG, Q2WK
     Route: 041
     Dates: start: 20100804, end: 20101014
  4. PANITUMUMAB [Suspect]
     Dosage: UNK UNK, Q2WK
     Route: 041
     Dates: start: 20120531, end: 20120726
  5. FLUOROURACIL [Suspect]
     Indication: COLORECTAL CANCER
     Route: 040
     Dates: start: 20100804
  6. LEUCOVORIN CALCIUM [Suspect]
     Indication: COLORECTAL CANCER
     Route: 041
     Dates: start: 20100804
  7. ANTEBATE [Concomitant]
     Dosage: UNK
     Route: 062
  8. LEUCOVORIN CALCIUM [Suspect]
     Dosage: UNK
     Route: 041
     Dates: start: 20120531
  9. FLUOROURACIL [Suspect]
     Route: 041
     Dates: start: 20100804
  10. FLUOROURACIL [Suspect]
     Dosage: UNK
     Route: 041
     Dates: start: 20120531
  11. ALLOID G [Concomitant]
     Dosage: UNK
     Route: 049
  12. CORTICOSTEROIDS [Concomitant]
     Indication: PROPHYLAXIS
     Dosage: UNK
     Route: 065
  13. OXALIPLATIN [Concomitant]
     Indication: COLORECTAL CANCER
     Route: 041
     Dates: start: 20120531
  14. HIRUDOID [Concomitant]
     Dosage: UNK
     Route: 062
  15. GENTAMICIN SULFATE [Concomitant]
     Dosage: UNK
     Route: 062
  16. IRINOTECAN HYDROCHLORIDE [Suspect]
     Indication: COLORECTAL CANCER
     Route: 041
     Dates: start: 20100804
  17. ALMETA [Concomitant]
     Dosage: UNK
     Route: 062
  18. MINOCYCLINE HYDROCHLORIDE [Concomitant]
     Dosage: UNK
     Route: 048

REACTIONS (7)
  - HEPATIC FUNCTION ABNORMAL [None]
  - PNEUMONIA [None]
  - HYPOMAGNESAEMIA [None]
  - STOMATITIS [None]
  - INTERSTITIAL LUNG DISEASE [None]
  - DERMATITIS ACNEIFORM [None]
  - PARONYCHIA [None]
